FAERS Safety Report 9596271 (Version 3)
Quarter: 2013Q4

REPORT INFORMATION
  Report Type: Report from Study
  Country: US (occurrence: US)
  Receive Date: 20131004
  Receipt Date: 20131028
  Transmission Date: 20140711
  Serious: Yes (Hospitalization)
  Sender: FDA-Public Use
  Company Number: US-ACTELION-A-US2013-88989

PATIENT
  Age: 45 Year
  Sex: Female

DRUGS (2)
  1. VELETRI [Suspect]
     Indication: PULMONARY ARTERIAL HYPERTENSION
     Dosage: 20 NG/KG, PER MIN
     Route: 042
     Dates: start: 20130918
  2. FUROSEMIDE [Concomitant]

REACTIONS (13)
  - Nasopharyngitis [Unknown]
  - Cough [Unknown]
  - Hysterectomy [Unknown]
  - Dyspnoea [Unknown]
  - Nausea [Unknown]
  - Diarrhoea [Unknown]
  - Chills [Unknown]
  - Vomiting [Unknown]
  - Hot flush [Unknown]
  - Rash [Unknown]
  - Decreased appetite [Unknown]
  - Haemoptysis [Unknown]
  - Oxygen saturation decreased [Unknown]
